FAERS Safety Report 12915325 (Version 2)
Quarter: 2017Q1

REPORT INFORMATION
  Report Type: Spontaneous
  Country: US (occurrence: US)
  Receive Date: 20161106
  Receipt Date: 20170216
  Transmission Date: 20170428
  Serious: No
  Sender: FDA-Public Use
  Company Number: US-RELYPSA-RLY2016002496

PATIENT
  Sex: Male

DRUGS (19)
  1. CLONIDINE HCL [Concomitant]
     Active Substance: CLONIDINE HYDROCHLORIDE
  2. HYDRALAZINE HCL [Concomitant]
     Active Substance: HYDRALAZINE HYDROCHLORIDE
  3. IRON [Concomitant]
     Active Substance: IRON
  4. LOPRESSOR HCT [Concomitant]
     Active Substance: HYDROCHLOROTHIAZIDE\METOPROLOL TARTRATE
  5. FLOMAX [Concomitant]
     Active Substance: TAMSULOSIN HYDROCHLORIDE
  6. AVODART [Concomitant]
     Active Substance: DUTASTERIDE
  7. NOVOLOG [Concomitant]
     Active Substance: INSULIN ASPART
  8. VITAMIN D3 [Concomitant]
     Active Substance: CHOLECALCIFEROL
  9. CALCITRIOL. [Concomitant]
     Active Substance: CALCITRIOL
  10. VELTASSA [Suspect]
     Active Substance: PATIROMER
     Dosage: 8.4 G, TWO TIMES WEEKLY
     Route: 048
     Dates: start: 20160920, end: 201612
  11. PHOSLO [Concomitant]
     Active Substance: CALCIUM ACETATE
  12. VELTASSA [Suspect]
     Active Substance: PATIROMER
     Dosage: 8.4 G, THREE TIMES WEEKLY
     Route: 048
     Dates: start: 2016, end: 20160919
  13. METOPROLOL TARTRATE. [Concomitant]
     Active Substance: METOPROLOL TARTRATE
  14. VELTASSA [Suspect]
     Active Substance: PATIROMER
     Indication: HYPERKALAEMIA
     Dosage: 8.4 G, QD
     Route: 048
     Dates: end: 2016
  15. KAYEXALATE [Concomitant]
     Active Substance: SODIUM POLYSTYRENE SULFONATE
  16. ZOCOR [Concomitant]
     Active Substance: SIMVASTATIN
  17. GABAPENTIN. [Concomitant]
     Active Substance: GABAPENTIN
  18. SODIUM BICARBONATE. [Concomitant]
     Active Substance: SODIUM BICARBONATE
  19. LASIX [Concomitant]
     Active Substance: FUROSEMIDE

REACTIONS (3)
  - Constipation [Recovered/Resolved]
  - Inappropriate schedule of drug administration [Unknown]
  - Flatulence [Recovered/Resolved]

NARRATIVE: CASE EVENT DATE: 2016
